FAERS Safety Report 11154717 (Version 1)
Quarter: 2015Q2

REPORT INFORMATION
  Report Type: Spontaneous
  Country: US (occurrence: None)
  Receive Date: 20150529
  Receipt Date: 20150529
  Transmission Date: 20150821
  Serious: Yes (Other)
  Sender: FDA-Public Use
  Company Number: 1224850-2015-00031

PATIENT
  Age: 81 Year
  Sex: Male

DRUGS (17)
  1. ACTIVASE [Concomitant]
     Active Substance: ALTEPLASE
  2. LOPRESSOR [Concomitant]
     Active Substance: METOPROLOL TARTRATE
  3. NIFEDIPINE. [Concomitant]
     Active Substance: NIFEDIPINE
  4. TYLENOL [Concomitant]
     Active Substance: ACETAMINOPHEN
  5. FERRLECIT [Concomitant]
     Active Substance: SODIUM FERRIC GLUCONATE COMPLEX
  6. CLONIDINE HCL [Concomitant]
     Active Substance: CLONIDINE HYDROCHLORIDE
  7. DOCUSATE SODIUM. [Concomitant]
     Active Substance: DOCUSATE SODIUM
  8. ZEMPLAR [Concomitant]
     Active Substance: PARICALCITOL
  9. HEPARIN [Concomitant]
     Active Substance: HEPARIN SODIUM
  10. VICODIN [Concomitant]
     Active Substance: ACETAMINOPHEN\HYDROCODONE BITARTRATE
  11. PHOSLO [Suspect]
     Active Substance: CALCIUM ACETATE
     Indication: HYPERPHOSPHATAEMIA
     Dosage: 667 MG 1 PO, QD
     Route: 048
     Dates: start: 20040101, end: 20040101
  12. EPOGEN [Concomitant]
     Active Substance: ERYTHROPOIETIN
  13. NEPHROCAPS [Concomitant]
     Active Substance: ASCORBIC ACID\BIOTIN\CYANOCOBALAMIN\FOLIC ACID\NIACIN\PANTOTHENIC ACID\PYRIDOXINE\RIBOFLAVIN\THIAMINE
  14. TUMS [Concomitant]
     Active Substance: CALCIUM CARBONATE
  15. ATARAX [Concomitant]
     Active Substance: HYDROXYZINE\HYDROXYZINE HYDROCHLORIDE
  16. COUMADIN [Concomitant]
     Active Substance: WARFARIN SODIUM
  17. BENADRYL [Concomitant]
     Active Substance: DIPHENHYDRAMINE HYDROCHLORIDE

REACTIONS (3)
  - Face oedema [None]
  - Urticaria [None]
  - Oedema peripheral [None]

NARRATIVE: CASE EVENT DATE: 20040101
